FAERS Safety Report 7434217-9 (Version None)
Quarter: 2011Q2

REPORT INFORMATION
  Report Type: 
  Country: None (occurrence: None)
  Receive Date: 20110415
  Receipt Date: 20110408
  Transmission Date: 20111010
  Serious: Yes (Other)
  Sender: FDA-Public Use
  Company Number: JHP201100095

PATIENT
  Age: 67 Year
  Sex: Male

DRUGS (7)
  1. ALCOHOL (ETHANOL) [Suspect]
     Indication: HAEMOSTASIS
     Dosage: 1 ML, INJECTION
  2. ALCOHOL (ETHANOL) [Suspect]
     Indication: PEPTIC ULCER HAEMORRHAGE
     Dosage: 1 ML, INJECTION
  3. EPINEPHRINE [Suspect]
     Indication: PEPTIC ULCER HAEMORRHAGE
     Dosage: 5 ML OF DILUTED
  4. EPINEPHRINE [Suspect]
     Indication: HAEMOSTASIS
     Dosage: 5 ML OF DILUTED
  5. RANITIDINE HCL [Concomitant]
  6. ENOXAPARIN SODIUM [Concomitant]
  7. PREDNISOLONE ACETATE [Concomitant]

REACTIONS (3)
  - ACUTE ABDOMEN [None]
  - POST PROCEDURAL HAEMATOMA [None]
  - RESPIRATORY FAILURE [None]
